FAERS Safety Report 5773924-0 (Version None)
Quarter: 2008Q2

REPORT INFORMATION
  Report Type: 
  Country: None (occurrence: None)
  Receive Date: 20080616
  Receipt Date: 20080611
  Transmission Date: 20081010
  Serious: Yes (Hospitalization)
  Sender: FDA-Public Use
  Company Number: B0524551A

PATIENT
  Age: 57 Year
  Sex: Female
  Weight: 50 kg

DRUGS (6)
  1. CLAMOXYL [Suspect]
     Indication: URINARY TRACT INFECTION
     Dosage: 1G PER DAY
     Route: 048
     Dates: start: 20080416, end: 20080423
  2. COUMADIN [Suspect]
     Indication: DRUG USE FOR UNKNOWN INDICATION
     Route: 048
     Dates: end: 20080425
  3. CIPROFLOXACIN HCL [Suspect]
     Indication: URINARY TRACT INFECTION
     Dosage: 500MG TWICE PER DAY
     Route: 048
     Dates: start: 20080418, end: 20080425
  4. DEPAKENE [Concomitant]
     Indication: DRUG USE FOR UNKNOWN INDICATION
     Route: 065
  5. NEXIUM [Concomitant]
     Indication: DRUG USE FOR UNKNOWN INDICATION
     Route: 065
  6. XANAX [Concomitant]
     Indication: DRUG USE FOR UNKNOWN INDICATION
     Route: 065

REACTIONS (7)
  - ANAEMIA [None]
  - DRUG INTERACTION [None]
  - DYSPNOEA [None]
  - HAEMATURIA [None]
  - INTERNATIONAL NORMALISED RATIO INCREASED [None]
  - PYREXIA [None]
  - VULVOVAGINITIS [None]
